FAERS Safety Report 14895038 (Version 3)
Quarter: 2018Q4

REPORT INFORMATION
  Report Type: Spontaneous
  Country: US (occurrence: US)
  Receive Date: 20180515
  Receipt Date: 20181213
  Transmission Date: 20190204
  Serious: Yes (Death, Hospitalization, Other)
  Sender: FDA-Public Use
  Company Number: US-ASTRAZENECA-2018SE62138

PATIENT
  Age: 19804 Day
  Sex: Female

DRUGS (38)
  1. ATORVASTATIN [Concomitant]
     Active Substance: ATORVASTATIN
     Indication: BLOOD CHOLESTEROL
     Dates: start: 2000, end: 2017
  2. ATENOLOL. [Concomitant]
     Active Substance: ATENOLOL
     Dates: start: 20150505
  3. VIOXX [Concomitant]
     Active Substance: ROFECOXIB
  4. PRILOSEC [Suspect]
     Active Substance: OMEPRAZOLE MAGNESIUM
     Indication: GASTROOESOPHAGEAL REFLUX DISEASE
     Dosage: GENERIC
     Route: 048
     Dates: start: 1995, end: 2010
  5. PREVACID [Suspect]
     Active Substance: LANSOPRAZOLE
     Indication: GASTROOESOPHAGEAL REFLUX DISEASE
     Route: 065
     Dates: start: 1995, end: 2007
  6. PROTONIX [Suspect]
     Active Substance: PANTOPRAZOLE SODIUM
     Indication: GASTROOESOPHAGEAL REFLUX DISEASE
     Route: 065
     Dates: start: 1995, end: 2006
  7. VITAMIN E [Concomitant]
     Active Substance: .ALPHA.-TOCOPHEROL
  8. AMITRIPTYLINE [Concomitant]
     Active Substance: AMITRIPTYLINE
     Dates: start: 1996, end: 2017
  9. BUPROPION. [Concomitant]
     Active Substance: BUPROPION
     Dates: start: 2015, end: 2017
  10. LEVETIRACETAM. [Concomitant]
     Active Substance: LEVETIRACETAM
  11. VALACICLOVIR [Concomitant]
     Active Substance: VALACYCLOVIR HYDROCHLORIDE
  12. ALPRAZOLAM. [Concomitant]
     Active Substance: ALPRAZOLAM
  13. CYCLOBENZAPRINE. [Concomitant]
     Active Substance: CYCLOBENZAPRINE
  14. ACETAMINOPHENE [Concomitant]
     Dosage: AS NEEDED
     Dates: start: 20170523
  15. DIGOXIN. [Concomitant]
     Active Substance: DIGOXIN
  16. ALENDRONATE [Concomitant]
     Active Substance: ALENDRONATE SODIUM
     Dates: start: 20170523
  17. GABAPENTIN. [Concomitant]
     Active Substance: GABAPENTIN
  18. PRILOSEC [Suspect]
     Active Substance: OMEPRAZOLE MAGNESIUM
     Indication: GASTROOESOPHAGEAL REFLUX DISEASE
     Route: 048
     Dates: start: 1995, end: 2016
  19. PREVACID [Suspect]
     Active Substance: LANSOPRAZOLE
     Indication: GASTROOESOPHAGEAL REFLUX DISEASE
     Route: 065
     Dates: start: 1995, end: 2016
  20. TRAZODONE [Concomitant]
     Active Substance: TRAZODONE HYDROCHLORIDE
  21. GAVISCON [Concomitant]
     Active Substance: ALUMINUM HYDROXIDE\MAGNESIUM CARBONATE
  22. COLESTYRAMINE [Concomitant]
     Active Substance: CHOLESTYRAMINE
  23. ASPIRIN. [Concomitant]
     Active Substance: ASPIRIN
     Indication: ANTICOAGULANT THERAPY
     Dates: start: 2000
  24. ASPIRIN. [Concomitant]
     Active Substance: ASPIRIN
     Indication: ANTICOAGULANT THERAPY
     Dates: start: 20170524
  25. ALBUTEROL. [Concomitant]
     Active Substance: ALBUTEROL
     Dosage: 2.5MG/3ML FOR NEBULIZATION EVERY 8 HOURS.
     Dates: start: 20170523
  26. ROFECOXIB [Concomitant]
     Active Substance: ROFECOXIB
     Indication: GASTROOESOPHAGEAL REFLUX DISEASE
  27. FAMOTIDINE. [Concomitant]
     Active Substance: FAMOTIDINE
  28. HEPARIN [Concomitant]
     Active Substance: HEPARIN SODIUM
     Dosage: 10000 UNIT/ML
     Dates: start: 20150505
  29. NYSTATIN. [Concomitant]
     Active Substance: NYSTATIN
     Dosage: 100000 UNIT/ML
     Dates: start: 20150505
  30. NITROGLYCERINE [Concomitant]
     Active Substance: NITROGLYCERIN
     Dosage: AS NEEDED
     Dates: start: 20170523
  31. PROTONIX [Suspect]
     Active Substance: PANTOPRAZOLE SODIUM
     Indication: GASTROOESOPHAGEAL REFLUX DISEASE
     Route: 065
     Dates: start: 1995, end: 2016
  32. BELLADONNA ALKALOIDS [Concomitant]
     Active Substance: BELLADONNA ALKALOIDS
     Dates: start: 20090427
  33. XANAX [Concomitant]
     Active Substance: ALPRAZOLAM
     Route: 048
  34. ELAVIL [Concomitant]
     Active Substance: AMITRIPTYLINE HYDROCHLORIDE
     Dosage: 300 MG AT A BEDTIME
  35. DULOXETINE. [Concomitant]
     Active Substance: DULOXETINE
  36. PRILOSEC [Suspect]
     Active Substance: OMEPRAZOLE MAGNESIUM
     Indication: GASTROOESOPHAGEAL REFLUX DISEASE
     Route: 048
     Dates: start: 20090518
  37. TRAMADOL. [Concomitant]
     Active Substance: TRAMADOL
  38. NITROSTAT [Concomitant]
     Active Substance: NITROGLYCERIN
     Dosage: 0.4 MG AS NEEDED

REACTIONS (5)
  - Acute kidney injury [Unknown]
  - Gastric volvulus [Fatal]
  - Chronic kidney disease [Unknown]
  - Nephropathy [Unknown]
  - Renal failure [Not Recovered/Not Resolved]

NARRATIVE: CASE EVENT DATE: 20070723
